FAERS Safety Report 8365692-3 (Version None)
Quarter: 2012Q2

REPORT INFORMATION
  Report Type: 
  Country: None (occurrence: None)
  Receive Date: 20120516
  Receipt Date: 20120510
  Transmission Date: 20120825
  Serious: Yes (Hospitalization, Other)
  Sender: FDA-Public Use
  Company Number: US-AMGEN-USASP2011030640

PATIENT
  Sex: Female
  Weight: 78 kg

DRUGS (14)
  1. LASIX [Concomitant]
     Dosage: UNK
  2. ZOFRAN [Concomitant]
     Dosage: UNK
  3. OXYCONTIN [Concomitant]
     Dosage: UNK
  4. ENBREL [Suspect]
     Indication: RHEUMATOID ARTHRITIS
     Dosage: 50 MG, QWK
     Dates: end: 20120101
  5. DIFLUCAN [Concomitant]
     Dosage: UNK
  6. SPIRONOLACTONE [Concomitant]
     Dosage: UNK
  7. SEPTRA [Concomitant]
     Dosage: UNK
  8. PROTONIX [Concomitant]
     Dosage: UNK
  9. CYMBALTA [Concomitant]
     Dosage: UNK
  10. DILAUDID [Concomitant]
     Dosage: UNK
  11. DEXAMETHASONE [Concomitant]
     Dosage: UNK
  12. KEPPRA [Concomitant]
     Dosage: UNK
  13. ENBREL [Suspect]
     Dosage: 50 MG, QWK
     Dates: start: 20080101, end: 20110601
  14. RESTORIL [Concomitant]
     Dosage: UNK

REACTIONS (3)
  - BRAIN NEOPLASM MALIGNANT [None]
  - GLIOBLASTOMA MULTIFORME [None]
  - PAIN [None]
